FAERS Safety Report 10065349 (Version 1)
Quarter: 2014Q2

REPORT INFORMATION
  Report Type: Spontaneous
  Country: US (occurrence: None)
  Receive Date: 20140407
  Receipt Date: 20140407
  Transmission Date: 20141212
  Serious: Yes (Other)
  Sender: FDA-Public Use
  Company Number: None

PATIENT
  Sex: Female
  Weight: 140.62 kg

DRUGS (3)
  1. LAMOTRIGINE [Suspect]
     Indication: BIPOLAR DISORDER
     Dosage: LAMICTOL, 400 MG, QD, PO
     Route: 048
  2. CYMBALTA [Concomitant]
  3. LAMICTAL [Suspect]
     Route: 048

REACTIONS (5)
  - Depression [None]
  - Mood swings [None]
  - Dizziness [None]
  - Product substitution issue [None]
  - Unevaluable event [None]
